APPROVED DRUG PRODUCT: LOSARTAN POTASSIUM
Active Ingredient: LOSARTAN POTASSIUM
Strength: 25MG
Dosage Form/Route: TABLET;ORAL
Application: A202230 | Product #001 | TE Code: AB
Applicant: MACLEODS PHARMACEUTICALS LTD
Approved: May 30, 2012 | RLD: No | RS: No | Type: RX